FAERS Safety Report 7403045-2 (Version None)
Quarter: 2011Q2

REPORT INFORMATION
  Report Type: 
  Country: None (occurrence: None)
  Receive Date: 20110408
  Receipt Date: 20110228
  Transmission Date: 20111010
  Serious: No
  Sender: FDA-Public Use
  Company Number: US-NOVEN-11US001899

PATIENT
  Sex: Male
  Weight: 49.887 kg

DRUGS (1)
  1. FENTANYL [Suspect]
     Indication: HEADACHE
     Dosage: 75 UG, Q72HR
     Route: 062

REACTIONS (3)
  - GAIT DISTURBANCE [None]
  - DRUG EFFECT INCREASED [None]
  - SOMNOLENCE [None]
